FAERS Safety Report 9238572 (Version 1)
Quarter: 2013Q2

REPORT INFORMATION
  Report Type: Spontaneous
  Country: CO (occurrence: CO)
  Receive Date: 20130418
  Receipt Date: 20130418
  Transmission Date: 20140414
  Serious: Yes (Hospitalization, Other)
  Sender: FDA-Public Use
  Company Number: CO-AMGEN-COLSP2013026718

PATIENT
  Age: 60 Year
  Sex: Female

DRUGS (7)
  1. CALCIUM [Concomitant]
     Indication: VITAMIN SUPPLEMENTATION
     Dosage: 1 MG, 1X/DAY
     Route: 048
  2. FOLIC ACID [Concomitant]
     Dosage: UNK
     Route: 048
     Dates: start: 2007
  3. ENBREL [Suspect]
     Indication: RHEUMATOID ARTHRITIS
     Dosage: 50 MG, WEEKLY
     Route: 058
     Dates: start: 2007, end: 201007
  4. PREDNISOLON                        /00016201/ [Concomitant]
     Indication: INFLAMMATION
     Dosage: 0.5 MG, QD
     Route: 048
     Dates: start: 1990
  5. NAPROXEN [Concomitant]
     Indication: ARTHRITIS
     Dosage: 500 MG, AS NEEDED
     Route: 048
     Dates: start: 1990, end: 2011
  6. CHLOROQUINE [Concomitant]
     Dosage: UNK
     Route: 048
     Dates: start: 1990, end: 2007
  7. GOLD [Concomitant]
     Indication: RHEUMATOID ARTHRITIS
     Dosage: UNK
     Route: 065
     Dates: start: 1990, end: 1993

REACTIONS (6)
  - Arthropathy [Recovered/Resolved]
  - Arthralgia [Recovered/Resolved]
  - Muscle spasms [Recovered/Resolved]
  - X-ray limb abnormal [Unknown]
  - Migraine [Unknown]
  - Lung disorder [Unknown]
